FAERS Safety Report 16736820 (Version 1)
Quarter: 2019Q3

REPORT INFORMATION
  Report Type: Spontaneous
  Country: CN (occurrence: CN)
  Receive Date: 20190823
  Receipt Date: 20190823
  Transmission Date: 20191005
  Serious: Yes (Hospitalization)
  Sender: FDA-Public Use
  Company Number: CN-ELI_LILLY_AND_COMPANY-CN201908006722

PATIENT
  Age: 75 Year
  Sex: Male
  Weight: 64 kg

DRUGS (3)
  1. HUMULIN 70/30 [Suspect]
     Active Substance: INSULIN HUMAN
     Dosage: 14 INTERNATIONAL UNIT, EACH EVENING
     Route: 058
     Dates: start: 20100430
  2. HUMULIN 70/30 [Suspect]
     Active Substance: INSULIN HUMAN
     Indication: DIABETES MELLITUS
     Dosage: 16 INTERNATIONAL UNIT, EACH MORNING
     Route: 058
     Dates: start: 20100430
  3. HUMULIN 70/30 [Suspect]
     Active Substance: INSULIN HUMAN
     Dosage: 20 INTERNATIONAL UNIT, BID
     Route: 058

REACTIONS (3)
  - Diplopia [Recovering/Resolving]
  - Hypoacusis [Not Recovered/Not Resolved]
  - Blood glucose increased [Not Recovered/Not Resolved]
